FAERS Safety Report 8416205-9 (Version None)
Quarter: 2012Q2

REPORT INFORMATION
  Report Type: 
  Country: None (occurrence: None)
  Receive Date: 20120606
  Receipt Date: 20111215
  Transmission Date: 20120825
  Serious: Yes (Hospitalization)
  Sender: FDA-Public Use
  Company Number: US-ROCHE-1075475

PATIENT
  Sex: Female
  Weight: 72.8 kg

DRUGS (11)
  1. KEFLEX [Concomitant]
  2. KEPPRA [Concomitant]
     Route: 048
  3. DEXAMETHASONE [Concomitant]
     Route: 048
  4. AMITRIPTYLINE HCL [Concomitant]
     Dosage: AT BED TIME
     Route: 048
  5. HUMALOG [Concomitant]
  6. AVASTIN [Suspect]
     Indication: ANAPLASTIC ASTROCYTOMA
     Route: 042
     Dates: start: 20110927, end: 20111206
  7. VORINOSTAT [Suspect]
     Indication: PRODUCT USED FOR UNKNOWN INDICATION
     Route: 048
     Dates: start: 20110927, end: 20111203
  8. NEXIUM [Concomitant]
     Route: 048
  9. METFORMIN HCL [Concomitant]
     Route: 048
  10. LANTUS [Concomitant]
  11. GLIPIZIDE [Concomitant]
     Route: 048

REACTIONS (3)
  - HYPERGLYCAEMIA [None]
  - WOUND INFECTION [None]
  - AGITATION [None]
